FAERS Safety Report 4781529-3 (Version None)
Quarter: 2005Q3

REPORT INFORMATION
  Report Type: 
  Country: None (occurrence: None)
  Receive Date: 20050928
  Receipt Date: 20050920
  Transmission Date: 20060218
  Serious: Yes (Other)
  Sender: FDA-Public Use
  Company Number: FR-SANOFI-SYNTHELABO-A01200506474

PATIENT
  Age: 66 Year
  Sex: Male

DRUGS (5)
  1. PLAVIX [Suspect]
     Indication: CORONARY ARTERIAL STENT INSERTION
     Route: 048
     Dates: start: 20050701
  2. SECTRAL [Suspect]
     Indication: HYPERTENSION
     Route: 048
     Dates: start: 20050701, end: 20050901
  3. SECTRAL [Suspect]
     Route: 048
     Dates: start: 20050901
  4. TAHOR [Concomitant]
     Indication: HYPERCHOLESTEROLAEMIA
     Route: 065
  5. DIAMICRON [Concomitant]
     Indication: DIABETES MELLITUS
     Route: 065

REACTIONS (2)
  - HYPOTENSION [None]
  - MALAISE [None]
